FAERS Safety Report 7943923-9 (Version None)
Quarter: 2011Q4

REPORT INFORMATION
  Report Type: 
  Country: None (occurrence: None)
  Receive Date: 20111128
  Receipt Date: 20111122
  Transmission Date: 20120403
  Serious: Yes (Other)
  Sender: FDA-Public Use
  Company Number: US-ROCHE-791979

PATIENT
  Sex: Female
  Weight: 70.37 kg

DRUGS (2)
  1. PREDNISONE TAB [Concomitant]
  2. ACCUTANE [Suspect]
     Indication: ACNE
     Route: 065
     Dates: start: 19970901, end: 19990601

REACTIONS (8)
  - INTESTINAL HAEMORRHAGE [None]
  - DEPRESSION [None]
  - INFLAMMATORY BOWEL DISEASE [None]
  - IRRITABLE BOWEL SYNDROME [None]
  - BACK PAIN [None]
  - WOUND [None]
  - HEPATIC ENZYME INCREASED [None]
  - GALLBLADDER DISORDER [None]
